FAERS Safety Report 7138746-7 (Version None)
Quarter: 2010Q4

REPORT INFORMATION
  Report Type: 
  Country: None (occurrence: None)
  Receive Date: 20101202
  Receipt Date: 20101202
  Transmission Date: 20110411
  Serious: No
  Sender: FDA-Public Use
  Company Number: None

PATIENT
  Sex: Male
  Weight: 90.8 kg

DRUGS (3)
  1. CARBOPLATIN [Suspect]
     Dosage: 1556 MG
     Dates: end: 20101130
  2. ERBITUX [Suspect]
     Dosage: 2415 MG
     Dates: end: 20101130
  3. TAXOL [Suspect]
     Dosage: 840 MG
     Dates: end: 20101130

REACTIONS (1)
  - NEUTROPHIL COUNT DECREASED [None]
